FAERS Safety Report 19281353 (Version 6)
Quarter: 2021Q4

REPORT INFORMATION
  Report Type: Report from Study
  Country: AU (occurrence: AU)
  Receive Date: 20210520
  Receipt Date: 20211012
  Transmission Date: 20220304
  Serious: Yes (Other)
  Sender: FDA-Public Use
  Company Number: AU-GLAXOSMITHKLINE-AU2021GSK103919

PATIENT
  Age: 71 Year
  Sex: Male

DRUGS (5)
  1. BELANTAMAB MAFODOTIN [Suspect]
     Active Substance: BELANTAMAB MAFODOTIN
     Indication: Plasma cell myeloma
     Dosage: 2.5 TO 1.9 MG/KG STEPDOWN
     Route: 042
     Dates: start: 20210504
  2. BORTEZOMIB [Suspect]
     Active Substance: BORTEZOMIB
     Indication: Plasma cell myeloma
     Dosage: UNK
     Route: 042
     Dates: start: 20210504
  3. FOSINOPRIL [Concomitant]
     Active Substance: FOSINOPRIL
     Indication: Hypertension
     Dosage: 20 MG, QD
     Route: 048
     Dates: start: 20160601
  4. AMLODIPINE BESYLATE\PERINDOPRIL ARGININE [Concomitant]
     Active Substance: AMLODIPINE BESYLATE\PERINDOPRIL ARGININE
     Indication: Hypertension
     Dosage: 10 MG, QD
     Route: 048
     Dates: start: 20210414
  5. DEXAMETHASONE [Suspect]
     Active Substance: DEXAMETHASONE

REACTIONS (1)
  - Alanine aminotransferase increased [Recovered/Resolved]

NARRATIVE: CASE EVENT DATE: 20210510
